FAERS Safety Report 25260042 (Version 1)
Quarter: 2025Q2

REPORT INFORMATION
  Report Type: Spontaneous
  Country: US (occurrence: US)
  Receive Date: 20250501
  Receipt Date: 20250501
  Transmission Date: 20250717
  Serious: No
  Sender: DR REDDYS
  Company Number: US-DRL-USA-USA/2025/04/005850

PATIENT
  Age: 65 Year
  Sex: Female

DRUGS (2)
  1. ESOMEPRAZOLE [Suspect]
     Active Substance: ESOMEPRAZOLE
     Indication: Lymphocytic oesophagitis
  2. SUCRALFATE [Concomitant]
     Active Substance: SUCRALFATE
     Indication: Lymphocytic oesophagitis

REACTIONS (1)
  - Drug ineffective for unapproved indication [Unknown]
